FAERS Safety Report 14783591 (Version 1)
Quarter: 2020Q3

REPORT INFORMATION
  Report Type: Spontaneous
  Country: ES (occurrence: ES)
  Receive Date: 20180420
  Receipt Date: 20180420
  Transmission Date: 20201105
  Serious: Yes (Death)
  Sender: FDA-Public Use
  Company Number: IND-ES-009507513-1804ESP006411

PATIENT
  Age: 75 Year
  Sex: Female

DRUGS (4)
  1. CARDURAN [Suspect]
     Active Substance: DOXAZOSIN MESYLATE
     Indication: HYPERTENSION
     Dosage: 4 MG DAY
     Route: 048
     Dates: start: 20110516, end: 20180306
  2. COAPROVEL [Concomitant]
     Active Substance: HYDROCHLOROTHIAZIDE\IRBESARTAN
     Dosage: UNK
     Dates: start: 20110301, end: 20180306
  3. BOREA [Concomitant]
     Active Substance: MEGESTROL ACETATE
     Dosage: UNK
     Dates: start: 20180301, end: 20180306
  4. ARCOXIA [Suspect]
     Active Substance: ETORICOXIB
     Dosage: UNK
     Dates: start: 20170301, end: 20180306

REACTIONS (2)
  - Bezoar [Fatal]
  - Intestinal obstruction [Fatal]

NARRATIVE: CASE EVENT DATE: 20171206
